FAERS Safety Report 9171471 (Version 1)
Quarter: 2013Q1

REPORT INFORMATION
  Report Type: Spontaneous
  Country: US (occurrence: US)
  Receive Date: 20130319
  Receipt Date: 20130319
  Transmission Date: 20140127
  Serious: Yes (Other)
  Sender: FDA-Public Use
  Company Number: US-PFIZER INC-2013086679

PATIENT
  Age: 82 Year
  Sex: Female
  Weight: 79.37 kg

DRUGS (3)
  1. CELEBREX [Suspect]
     Indication: ARTHRITIS
     Dosage: AS NEEDED
     Route: 048
     Dates: start: 20120911
  2. LOVAZA [Concomitant]
     Indication: BLOOD CHOLESTEROL INCREASED
     Dosage: 1 G, 4X/DAY
     Route: 048
  3. BENICAR HCT [Concomitant]
     Indication: HYPERTENSION
     Dosage: 12.5/40MG (1 TABLET) DAILY
     Route: 048

REACTIONS (4)
  - Joint range of motion decreased [Not Recovered/Not Resolved]
  - Arthralgia [Not Recovered/Not Resolved]
  - Sensory loss [Not Recovered/Not Resolved]
  - Intentional drug misuse [Unknown]
